FAERS Safety Report 20494197 (Version 6)
Quarter: 2023Q1

REPORT INFORMATION
  Report Type: Report from Study
  Country: CA (occurrence: CA)
  Receive Date: 20220221
  Receipt Date: 20230330
  Transmission Date: 20230418
  Serious: Yes (Hospitalization, Other)
  Sender: FDA-Public Use
  Company Number: CA-BAUSCH-BL-2022-004189

PATIENT
  Age: 69 Year
  Sex: Male

DRUGS (8)
  1. SILIQ [Suspect]
     Active Substance: BRODALUMAB
     Indication: Psoriasis
     Dosage: 210MG/ 1.5 ML, INDUCTION WEEKLY, WEEK 0: 26/JAN/2022, WEEK 1: /FEB/2022
     Route: 058
     Dates: start: 20220126, end: 202202
  2. SILIQ [Suspect]
     Active Substance: BRODALUMAB
     Dosage: CURRENT DOSAGE: 210MG/ 1.5 ML, Q 2 WEEKS
     Route: 058
     Dates: start: 2022
  3. SILIQ [Suspect]
     Active Substance: BRODALUMAB
     Dosage: 210MG/ 1.5 ML, Q 2 WEEKS
     Route: 058
     Dates: start: 20220428
  4. BISOPROLOL [Concomitant]
     Active Substance: BISOPROLOL
     Indication: Product used for unknown indication
     Route: 065
  5. GABAPENTIN [Concomitant]
     Active Substance: GABAPENTIN
     Indication: Product used for unknown indication
     Route: 065
  6. ATIVAN [Concomitant]
     Active Substance: LORAZEPAM
     Indication: Product used for unknown indication
     Route: 065
  7. LIPITOR [Concomitant]
     Active Substance: ATORVASTATIN CALCIUM
     Indication: Product used for unknown indication
     Route: 065
  8. ASPIRIN [Concomitant]
     Active Substance: ASPIRIN
     Indication: Product used for unknown indication
     Route: 065

REACTIONS (12)
  - Gait inability [Not Recovered/Not Resolved]
  - Hospitalisation [Unknown]
  - Cataract [Unknown]
  - Psoriasis [Unknown]
  - Pain in extremity [Unknown]
  - Fall [Unknown]
  - Joint swelling [Not Recovered/Not Resolved]
  - Peripheral swelling [Not Recovered/Not Resolved]
  - Nightmare [Unknown]
  - Arthralgia [Recovering/Resolving]
  - Patient dissatisfaction with treatment [Unknown]
  - Product dose omission issue [Unknown]

NARRATIVE: CASE EVENT DATE: 20220101
